FAERS Safety Report 9501322 (Version 1)
Quarter: 2013Q3

REPORT INFORMATION
  Report Type: Spontaneous
  Country: JP (occurrence: JP)
  Receive Date: 20130905
  Receipt Date: 20130905
  Transmission Date: 20140515
  Serious: Yes (Death, Hospitalization)
  Sender: FDA-Public Use
  Company Number: JP-SANOFI-AVENTIS-2013SA087291

PATIENT
  Age: 72 Year
  Sex: Male

DRUGS (5)
  1. PACLITAXEL [Suspect]
     Indication: METASTATIC GASTRIC CANCER
     Route: 042
  2. DOCETAXEL [Suspect]
     Indication: METASTATIC GASTRIC CANCER
     Route: 041
  3. DOCETAXEL [Suspect]
     Indication: METASTATIC GASTRIC CANCER
     Dosage: A TOTAL OF 95 MG WAS INFUSED
     Route: 041
  4. GIMERACIL/OTERACIL POTASSIUM/TEGAFUR [Suspect]
     Indication: METASTATIC GASTRIC CANCER
     Route: 042
  5. ALL OTHER THERAPEUTIC PRODUCTS [Concomitant]
     Route: 048

REACTIONS (12)
  - Liver abscess [Fatal]
  - Aspartate aminotransferase increased [Fatal]
  - Alanine aminotransferase increased [Fatal]
  - Escherichia sepsis [Fatal]
  - Pyrexia [Fatal]
  - White blood cell count increased [Fatal]
  - C-reactive protein increased [Fatal]
  - Red blood cell count increased [Fatal]
  - Platelet count decreased [Fatal]
  - Multi-organ failure [Fatal]
  - Hypotension [Fatal]
  - Renal impairment [Fatal]
